FAERS Safety Report 4287563-4 (Version None)
Quarter: 2004Q1

REPORT INFORMATION
  Report Type: 
  Country: None (occurrence: None)
  Receive Date: 20040209
  Receipt Date: 20030725
  Transmission Date: 20041129
  Serious: No
  Sender: FDA-Public Use
  Company Number: US-GLAXOSMITHKLINE-A0418404A

PATIENT
  Age: 47 Year
  Sex: Male

DRUGS (2)
  1. PAXIL CR [Suspect]
     Indication: ANXIETY
     Dosage: 12.5MG AT NIGHT
     Route: 048
     Dates: start: 20030718
  2. XANAX [Concomitant]
     Dosage: .5MG TWICE PER DAY

REACTIONS (2)
  - ASTHENIA [None]
  - FATIGUE [None]
